FAERS Safety Report 8488885-3 (Version None)
Quarter: 2012Q3

REPORT INFORMATION
  Report Type: 
  Country: None (occurrence: None)
  Receive Date: 20120705
  Receipt Date: 20120625
  Transmission Date: 20120928
  Serious: Yes (Other)
  Sender: FDA-Public Use
  Company Number: JP-ROCHE-1082067

PATIENT

DRUGS (1)
  1. ROCEPHIN [Suspect]
     Indication: PNEUMONIA BACTERIAL
     Route: 042

REACTIONS (1)
  - HYPERCALCIURIA [None]
